FAERS Safety Report 5191618-X (Version None)
Quarter: 2006Q4

REPORT INFORMATION
  Report Type: 
  Country: None (occurrence: None)
  Receive Date: 20061219
  Receipt Date: 20061206
  Transmission Date: 20070319
  Serious: Yes (Life-Threatening, Hospitalization)
  Sender: FDA-Public Use
  Company Number: GB-2006-037071

PATIENT
  Age: 44 Year
  Sex: Female
  Weight: 95 kg

DRUGS (1)
  1. MAGNEVIST [Suspect]
     Indication: NUCLEAR MAGNETIC RESONANCE IMAGING
     Dosage: 10 ML, 1 DOSE, INTRAVENOUS
     Route: 042
     Dates: start: 20061127, end: 20061127

REACTIONS (7)
  - AGITATION [None]
  - ANAPHYLACTIC REACTION [None]
  - CONTRAST MEDIA REACTION [None]
  - DYSPHONIA [None]
  - FATIGUE [None]
  - PRURITUS [None]
  - URINARY TRACT INFECTION [None]
